FAERS Safety Report 20162292 (Version 1)
Quarter: 2021Q4

REPORT INFORMATION
  Report Type: Spontaneous
  Country: CN (occurrence: CN)
  Receive Date: 20211208
  Receipt Date: 20211208
  Transmission Date: 20220304
  Serious: Yes (Other)
  Sender: FDA-Public Use
  Company Number: CN-NAPPMUNDI-GBR-2021-0093115

PATIENT
  Age: 80 Year
  Sex: Female
  Weight: 49 kg

DRUGS (1)
  1. MS CONTIN [Suspect]
     Active Substance: MORPHINE SULFATE
     Indication: Analgesic therapy
     Dosage: 30 MG, Q12H
     Route: 048
     Dates: start: 20211103, end: 20211104

REACTIONS (8)
  - Coma [Recovering/Resolving]
  - Respiratory depression [Recovering/Resolving]
  - Overdose [Unknown]
  - Miosis [Recovering/Resolving]
  - Respiratory rate decreased [Recovering/Resolving]
  - Pupillary reflex impaired [Recovering/Resolving]
  - Drug metabolite level high [Unknown]
  - Lethargy [Unknown]

NARRATIVE: CASE EVENT DATE: 20211105
